FAERS Safety Report 5968823-5 (Version None)
Quarter: 2008Q4

REPORT INFORMATION
  Report Type: 
  Country: None (occurrence: None)
  Receive Date: 20081126
  Receipt Date: 20081118
  Transmission Date: 20090506
  Serious: Yes (Hospitalization)
  Sender: FDA-Public Use
  Company Number: CA-JNJFOC-20080902414

PATIENT
  Sex: Female
  Weight: 40 kg

DRUGS (10)
  1. REMICADE [Suspect]
     Route: 042
  2. REMICADE [Suspect]
     Indication: RHEUMATOID ARTHRITIS
     Dosage: INITIAL DOSE
     Route: 042
  3. REMICADE [Suspect]
     Indication: ANKYLOSING SPONDYLITIS
     Dosage: INITIAL DOSE
     Route: 042
  4. K-DUR [Concomitant]
     Indication: VITAMIN SUPPLEMENTATION
     Route: 048
  5. PREDNISONE TAB [Concomitant]
     Indication: RHEUMATOID ARTHRITIS
     Route: 048
  6. PREDNISONE TAB [Concomitant]
     Indication: ANKYLOSING SPONDYLITIS
     Route: 048
  7. COZAAR [Concomitant]
     Indication: HYPERTENSION
     Route: 048
  8. LANOXIN [Concomitant]
     Indication: MITRAL VALVE INCOMPETENCE
     Route: 048
  9. LASIX [Concomitant]
     Route: 048
  10. VITAMIN D CA 500 [Concomitant]
     Indication: VITAMIN SUPPLEMENTATION
     Route: 048

REACTIONS (2)
  - LYMPHOPENIA [None]
  - SUBCUTANEOUS ABSCESS [None]
